FAERS Safety Report 10218490 (Version 3)
Quarter: 2014Q2

REPORT INFORMATION
  Report Type: Report from Study
  Country: KR (occurrence: KR)
  Receive Date: 20140605
  Receipt Date: 20140618
  Transmission Date: 20141212
  Serious: Yes (Hospitalization)
  Sender: FDA-Public Use
  Company Number: KR-ROCHE-1388228

PATIENT
  Age: 73 Year
  Sex: Male
  Weight: 62.9 kg

DRUGS (23)
  1. TRASTUZUMAB [Suspect]
     Indication: GASTRIC CANCER
     Dosage: LOADING DOSE
     Route: 042
     Dates: start: 20131113
  2. TRASTUZUMAB [Suspect]
     Dosage: MAINTANANCE DOSE?RECENT DOSE PRIOR TO EVENT : 08/APR/2014
     Route: 042
  3. CAPECITABINE [Suspect]
     Indication: GASTRIC CANCER
     Dosage: RECENT DOSE PRIOR TO EVENT : 19/APR/2014
     Route: 048
     Dates: start: 20131113
  4. CISPLATIN [Suspect]
     Indication: GASTRIC CANCER
     Dosage: RECENT DOSE PRIRO TO EVENT : 08/APR/2014
     Route: 042
     Dates: start: 20131112
  5. VOGLIBOSE [Concomitant]
     Indication: DIABETES MELLITUS
     Route: 048
     Dates: start: 2003
  6. CILOSTAZOL [Concomitant]
     Indication: ANTICOAGULANT THERAPY
     Route: 048
     Dates: start: 20131027
  7. GINKOBIL [Concomitant]
     Indication: ANTICOAGULANT THERAPY
     Dosage: REPORTED AS : GINKO BILOBA LEAF EXTRACT
     Route: 048
     Dates: start: 20131027
  8. ESOPRAZOLE [Concomitant]
     Indication: GASTRITIS
     Route: 048
     Dates: start: 20131027
  9. LEVOSULPIRIDE [Concomitant]
     Indication: GASTRITIS
     Route: 048
     Dates: start: 20131027
  10. REBAMIPIDE [Concomitant]
     Dosage: LEVOTRON TABLET
     Route: 048
     Dates: start: 20131027
  11. ALMAGATE [Concomitant]
     Indication: GASTRITIS
     Route: 048
     Dates: start: 20131113
  12. APREPITANT [Concomitant]
     Indication: NAUSEA
     Route: 048
     Dates: start: 20131113, end: 20140409
  13. APREPITANT [Concomitant]
     Indication: NAUSEA
     Route: 048
     Dates: start: 20131114, end: 20140411
  14. DEXAMETHASONE [Concomitant]
     Indication: HYPERSENSITIVITY
     Dosage: FOR : HYPERSENSITIVITY OF CHEMOTHERAPY
     Route: 042
     Dates: start: 20131113, end: 20140409
  15. CHLORPHENIRAMINE [Concomitant]
     Indication: HYPERSENSITIVITY
     Dosage: FOR : HYPERSENSITIVITY OF CHEMOTHERAPY
     Route: 042
     Dates: start: 20131113
  16. PALONOSETRON [Concomitant]
     Indication: NAUSEA
     Route: 042
     Dates: start: 20131113
  17. MANNITOL [Concomitant]
     Dosage: FOR : FACILITATE EXCRETION
     Route: 042
     Dates: start: 20131113
  18. FUROSEMIDE [Concomitant]
     Dosage: FOR : FACILITATE EXCRETION
     Route: 042
     Dates: start: 20131113
  19. MGSO4 [Concomitant]
     Indication: HYPOMAGNESAEMIA
     Route: 042
     Dates: start: 20131113
  20. CORTISOLU [Concomitant]
     Indication: HYPERSENSITIVITY
     Dosage: FOR : HYPERSENSITIVITY CHEMOTHERAPY
     Route: 042
     Dates: start: 20131113
  21. CHLORHEXIDINE [Concomitant]
     Indication: STOMATITIS
     Route: 048
     Dates: start: 20131120
  22. PLACEBO [Suspect]
     Indication: HER-2 POSITIVE GASTRIC CANCER
     Dosage: LOADING DSE
     Route: 042
     Dates: start: 20131113
  23. PLACEBO [Suspect]
     Indication: HER-2 POSITIVE GASTRIC CANCER
     Dosage: MAINTANANCE DOSE?RECENT DOSE PRIOR TO EVENT : 08/APR/2014
     Route: 042

REACTIONS (1)
  - Colitis [Recovered/Resolved]
